FAERS Safety Report 5633073-9 (Version None)
Quarter: 2008Q1

REPORT INFORMATION
  Report Type: 
  Country: None (occurrence: None)
  Receive Date: 20080221
  Receipt Date: 20080213
  Transmission Date: 20080703
  Serious: Yes (Hospitalization)
  Sender: FDA-Public Use
  Company Number: FR-AVENTIS-200810585FR

PATIENT
  Age: 66 Year
  Sex: Male

DRUGS (13)
  1. LOVENOX [Suspect]
     Indication: THROMBOSIS PROPHYLAXIS
     Route: 058
     Dates: start: 20071207, end: 20080122
  2. NEXIUM [Suspect]
     Indication: PROPHYLAXIS AGAINST GASTROINTESTINAL ULCER
     Route: 048
     Dates: start: 20071216, end: 20080122
  3. NEO-MERCAZOLE TAB [Suspect]
     Indication: HYPERTHYROIDISM
     Route: 048
     Dates: start: 20071218, end: 20071227
  4. NEO-MERCAZOLE TAB [Suspect]
     Route: 048
     Dates: start: 20071228, end: 20071228
  5. NEO-MERCAZOLE TAB [Suspect]
     Route: 048
     Dates: start: 20071229, end: 20080104
  6. NEO-MERCAZOLE TAB [Suspect]
     Route: 048
     Dates: start: 20080105, end: 20080121
  7. MEPRONIZINE                        /00789201/ [Suspect]
     Indication: INSOMNIA
     Route: 048
     Dates: start: 20080107, end: 20080122
  8. CIFLOX                             /00697201/ [Suspect]
     Indication: URINARY TRACT INFECTION
     Route: 048
     Dates: start: 20080114, end: 20080123
  9. AVLOCARDYL [Concomitant]
     Indication: SINUS TACHYCARDIA
     Route: 048
  10. SOLUPRED                           /00016201/ [Concomitant]
     Route: 048
  11. KARDEGIC                           /00002703/ [Concomitant]
     Route: 048
  12. ATARAX                             /00058402/ [Concomitant]
     Indication: ANXIETY
     Route: 048
  13. ATARAX                             /00058402/ [Concomitant]
     Indication: AGITATION
     Route: 048

REACTIONS (1)
  - NEUTROPENIA [None]
